FAERS Safety Report 17402201 (Version 6)
Quarter: 2020Q2

REPORT INFORMATION
  Report Type: Spontaneous
  Country: US (occurrence: US)
  Receive Date: 20200211
  Receipt Date: 20200618
  Transmission Date: 20200713
  Serious: No
  Sender: FDA-Public Use
  Company Number: US-PFIZER INC-2020058418

PATIENT
  Age: 46 Year
  Sex: Female

DRUGS (3)
  1. RETACRIT [Suspect]
     Active Substance: EPOETIN ALFA-EPBX
     Indication: RENAL TRANSPLANT
     Dosage: 40000 ML, UNK
  2. RETACRIT [Suspect]
     Active Substance: EPOETIN ALFA-EPBX
     Indication: ANAEMIA
     Dosage: 40000 IU, 2X/WEEK [40,000 UNITS EVERY 2 WEEKS]
  3. RETACRIT [Suspect]
     Active Substance: EPOETIN ALFA-EPBX
     Dosage: 20000 UNK (20,000 SQ EVERY 2 WEEKS)
     Route: 058

REACTIONS (3)
  - Drug ineffective [Unknown]
  - Product dose omission [Unknown]
  - Off label use [Unknown]
